FAERS Safety Report 4545006-7 (Version None)
Quarter: 2005Q1

REPORT INFORMATION
  Report Type: 
  Country: None (occurrence: None)
  Receive Date: 20050104
  Receipt Date: 20041222
  Transmission Date: 20050727
  Serious: Yes (Hospitalization)
  Sender: FDA-Public Use
  Company Number: 2004UW26069

PATIENT
  Age: 85 Year
  Sex: Female

DRUGS (5)
  1. CRESTOR [Suspect]
     Dosage: 5 MG QOD PO
     Route: 048
     Dates: start: 20040427, end: 20041201
  2. LISINOPRIL [Concomitant]
  3. SPIRONOLACTONE [Concomitant]
  4. BURINEX [Concomitant]
  5. LEVOTHYROXINE SODIUM [Concomitant]

REACTIONS (4)
  - GASTROENTERITIS [None]
  - HYPOTENSION [None]
  - HYPOVOLAEMIA [None]
  - RENAL FAILURE ACUTE [None]
